FAERS Safety Report 13328738 (Version 1)
Quarter: 2017Q1

REPORT INFORMATION
  Report Type: Spontaneous
  Country: US (occurrence: US)
  Receive Date: 20170311
  Receipt Date: 20170311
  Transmission Date: 20170428
  Serious: Yes (Other)
  Sender: FDA-Public Use
  Company Number: None

PATIENT
  Age: 43 Year
  Sex: Male
  Weight: 72 kg

DRUGS (2)
  1. SUBOXONE [Suspect]
     Active Substance: BUPRENORPHINE HYDROCHLORIDE\NALOXONE HYDROCHLORIDE
     Route: 060
     Dates: start: 20170119, end: 20170120
  2. SUBOXONE [Suspect]
     Active Substance: BUPRENORPHINE HYDROCHLORIDE\NALOXONE HYDROCHLORIDE
     Route: 060
     Dates: start: 20170303, end: 20170304

REACTIONS (6)
  - Drug effect decreased [None]
  - Drug withdrawal syndrome [None]
  - Heart rate increased [None]
  - Tremor [None]
  - Product colour issue [None]
  - Hyperhidrosis [None]

NARRATIVE: CASE EVENT DATE: 20170120
